FAERS Safety Report 7102138-7 (Version None)
Quarter: 2010Q4

REPORT INFORMATION
  Report Type: 
  Country: None (occurrence: None)
  Receive Date: 20101115
  Receipt Date: 20101102
  Transmission Date: 20110411
  Serious: Yes (Hospitalization)
  Sender: FDA-Public Use
  Company Number: US-BIOGENIDEC-2010BI038163

PATIENT
  Age: 50 Year
  Sex: Female

DRUGS (3)
  1. AVONEX [Suspect]
     Indication: MULTIPLE SCLEROSIS
     Route: 030
     Dates: start: 20100415
  2. AVONEX [Suspect]
     Route: 030
     Dates: start: 20010601
  3. AVONEX [Suspect]
     Route: 030
     Dates: start: 20010629

REACTIONS (1)
  - COLON CANCER [None]
